FAERS Safety Report 5288924-7 (Version None)
Quarter: 2007Q1

REPORT INFORMATION
  Report Type: 
  Country: None (occurrence: None)
  Receive Date: 20070119
  Receipt Date: 20060928
  Transmission Date: 20070707
  Serious: Yes (Hospitalization)
  Sender: FDA-Public Use
  Company Number: BDI-008688

PATIENT
  Age: 77 Year
  Sex: Female
  Weight: 62 kg

DRUGS (5)
  1. PROHANCE [Suspect]
     Indication: NUCLEAR MAGNETIC RESONANCE IMAGING
     Dosage: 13 ML ONCE IV
     Route: 042
     Dates: start: 20060927, end: 20060927
  2. PROHANCE [Suspect]
     Indication: SPINDLE CELL SARCOMA
     Dosage: 13 ML ONCE IV
     Route: 042
     Dates: start: 20060927, end: 20060927
  3. ATENOLOL [Concomitant]
  4. ALLOPURINOL [Concomitant]
  5. PRAVACHOL [Concomitant]

REACTIONS (1)
  - ANAPHYLACTIC SHOCK [None]
